FAERS Safety Report 17744941 (Version 6)
Quarter: 2022Q1

REPORT INFORMATION
  Report Type: Spontaneous
  Country: US (occurrence: US)
  Receive Date: 20200505
  Receipt Date: 20220131
  Transmission Date: 20220423
  Serious: Yes (Other)
  Sender: FDA-Public Use
  Company Number: US-PFIZER INC-2020179171

PATIENT
  Age: 72 Year
  Sex: Female

DRUGS (16)
  1. IBRANCE [Suspect]
     Active Substance: PALBOCICLIB
     Indication: Breast cancer
     Dosage: 75 MG, DAILY FOR 21 DAYS ON, 7 DAYS OFF ON A 28 DAY CYCLE
     Route: 048
     Dates: start: 201805
  2. TYLENOL [Concomitant]
     Active Substance: ACETAMINOPHEN
     Dosage: 325 MG
  3. BIOTIN [Concomitant]
     Active Substance: BIOTIN
     Dosage: 2500 UG
  4. XGEVA [Concomitant]
     Active Substance: DENOSUMAB
     Dosage: 120 MG (120MG/1.7 VIAL)
  5. XARELTO [Concomitant]
     Active Substance: RIVAROXABAN
     Dosage: 10 MG
  6. FLUTICASONE FUROATE\SALMETEROL XINAFOATE [Concomitant]
     Active Substance: FLUTICASONE FUROATE\SALMETEROL XINAFOATE
     Dosage: UNK
  7. AMLODIPINE BESYLATE [Concomitant]
     Active Substance: AMLODIPINE BESYLATE
     Dosage: 10 MG
  8. MECLIZINE HYDROCHLORIDE [Concomitant]
     Active Substance: MECLIZINE HYDROCHLORIDE
     Dosage: 12.5 MG
  9. METHOTREXATE [Concomitant]
     Active Substance: METHOTREXATE
     Dosage: 25 MG (25 MG/ML VIAL)
  10. KEFLEX [Concomitant]
     Active Substance: CEPHALEXIN
     Dosage: 750 MG
  11. LETROZOLE [Concomitant]
     Active Substance: LETROZOLE
     Dosage: 2.5 MG
  12. CALCIUM [Concomitant]
     Active Substance: CALCIUM
     Dosage: UNK(500(1250))
  13. ZYRTEC [Concomitant]
     Active Substance: CETIRIZINE HYDROCHLORIDE
     Dosage: 10 MG
  14. LOSARTAN POTASSIUM [Concomitant]
     Active Substance: LOSARTAN POTASSIUM
     Dosage: 100 MG
  15. SYNTHROID [Concomitant]
     Active Substance: LEVOTHYROXINE SODIUM
     Dosage: UNK
  16. CLOBETASOL [Concomitant]
     Active Substance: CLOBETASOL
     Dosage: UNK (EMOLLIENT)

REACTIONS (26)
  - Gastric polyps [Unknown]
  - Large intestine polyp [Unknown]
  - Thrombosis [Unknown]
  - Anaemia [Unknown]
  - Diarrhoea [Unknown]
  - Arthralgia [Unknown]
  - Alopecia [Unknown]
  - Urinary tract infection [Unknown]
  - Trigger finger [Recovering/Resolving]
  - Joint stiffness [Recovering/Resolving]
  - Musculoskeletal stiffness [Recovering/Resolving]
  - Fatigue [Unknown]
  - Restless legs syndrome [Unknown]
  - Muscle spasms [Unknown]
  - Insomnia [Unknown]
  - Constipation [Not Recovered/Not Resolved]
  - Thyroid disorder [Unknown]
  - Arthritis [Unknown]
  - Peripheral swelling [Unknown]
  - Pain in extremity [Unknown]
  - COVID-19 [Unknown]
  - Feeding disorder [Unknown]
  - Dysphagia [Unknown]
  - Pyrexia [Unknown]
  - Anosmia [Unknown]
  - Cough [Unknown]

NARRATIVE: CASE EVENT DATE: 20211224
